FAERS Safety Report 14427139 (Version 2)
Quarter: 2019Q1

REPORT INFORMATION
  Report Type: Spontaneous
  Country: US (occurrence: US)
  Receive Date: 20180123
  Receipt Date: 20190303
  Transmission Date: 20190417
  Serious: No
  Sender: FDA-Public Use
  Company Number: US-IMPAX LABORATORIES, INC-2017-IPXL-03377

PATIENT
  Age: 81 Year
  Sex: Male
  Weight: 122 kg

DRUGS (2)
  1. RYTARY [Suspect]
     Active Substance: CARBIDOPA\LEVODOPA
     Dosage: 48.75/195 MG, 2 DF, 3 /DAY
     Route: 048
  2. RYTARY [Suspect]
     Active Substance: CARBIDOPA\LEVODOPA
     Indication: PARKINSON^S DISEASE
     Dosage: 36.25MG/145 MG, 2 DF, TID (6 HOURS APART AT 7AM,1PM, 7PM)
     Route: 048

REACTIONS (4)
  - Tremor [Not Recovered/Not Resolved]
  - Dysgeusia [Recovered/Resolved]
  - Labelled drug-food interaction medication error [Unknown]
  - Anxiety [Recovered/Resolved]
